FAERS Safety Report 24750460 (Version 7)
Quarter: 2025Q1

REPORT INFORMATION
  Report Type: Spontaneous
  Country: US (occurrence: US)
  Receive Date: 20241218
  Receipt Date: 20250122
  Transmission Date: 20250409
  Serious: Yes (Death, Hospitalization, Other)
  Sender: GILEAD
  Company Number: US-GILEAD-2024-0697606

PATIENT
  Age: 47 Year
  Sex: Female

DRUGS (44)
  1. YESCARTA [Suspect]
     Active Substance: AXICABTAGENE CILOLEUCEL
     Indication: B-cell lymphoma
     Route: 042
     Dates: start: 20241127, end: 20241127
  2. KEPPRA [Concomitant]
     Active Substance: LEVETIRACETAM
     Indication: Prophylaxis
     Dates: start: 20241120
  3. KEPPRA [Concomitant]
     Active Substance: LEVETIRACETAM
     Route: 048
     Dates: start: 20241220
  4. ZOVIRAX [Concomitant]
     Active Substance: ACYCLOVIR
  5. ALLOPURINOL [Concomitant]
     Active Substance: ALLOPURINOL
  6. ELIQUIS [Concomitant]
     Active Substance: APIXABAN
  7. BENZONATATE [Concomitant]
     Active Substance: BENZONATATE
  8. BISMUTH SUBSALICYLATE [Concomitant]
     Active Substance: BISMUTH SUBSALICYLATE
  9. CEPHALEXIN [Concomitant]
     Active Substance: CEPHALEXIN
  10. CLARITHROMYCIN [Concomitant]
     Active Substance: CLARITHROMYCIN
  11. DEXAMETHASONE [Concomitant]
     Active Substance: DEXAMETHASONE
     Indication: Tremor
     Route: 042
     Dates: start: 20241207
  12. DEXAMETHASONE [Concomitant]
     Active Substance: DEXAMETHASONE
     Indication: Neurotoxicity
     Dosage: INCREASED TO 10 MG, Q6H
     Dates: start: 20241211
  13. DEXAMETHASONE [Concomitant]
     Active Substance: DEXAMETHASONE
     Dates: start: 20241214
  14. DEXAMETHASONE [Concomitant]
     Active Substance: DEXAMETHASONE
     Dosage: INCREASED BACK TO 10 MG, Q6H THEN TAPERED UNTIL ON 10 MG Q12 HR STARTING ON 03-JAN-2025
     Dates: start: 20241231
  15. DEXAMETHASONE [Concomitant]
     Active Substance: DEXAMETHASONE
     Dates: start: 20250103, end: 20250106
  16. DICYCLOMINE HYDROCHLORIDE [Concomitant]
     Active Substance: DICYCLOMINE HYDROCHLORIDE
  17. DOXYCYCLINE HYCLATE [Concomitant]
     Active Substance: DOXYCYCLINE HYCLATE
  18. VITAMIN D2 [Concomitant]
     Active Substance: ERGOCALCIFEROL
  19. FAMOTIDINE [Concomitant]
     Active Substance: FAMOTIDINE
  20. FERROUS SULFATE [Concomitant]
     Active Substance: FERROUS SULFATE
  21. DIFLUCAN [Concomitant]
     Active Substance: FLUCONAZOLE
  22. ACETAMINOPHEN\HYDROCODONE [Concomitant]
     Active Substance: ACETAMINOPHEN\HYDROCODONE
  23. LACTULOSE [Concomitant]
     Active Substance: LACTULOSE
  24. LEVOFLOXACIN [Concomitant]
     Active Substance: LEVOFLOXACIN
  25. LEVAQUIN [Concomitant]
     Active Substance: LEVOFLOXACIN
  26. METRONIDAZOLE [Concomitant]
     Active Substance: METRONIDAZOLE
  27. OLANZAPINE [Concomitant]
     Active Substance: OLANZAPINE
  28. OMEPRAZOLE [Concomitant]
     Active Substance: OMEPRAZOLE
  29. ONDANSETRON [Concomitant]
     Active Substance: ONDANSETRON
  30. ZOFRAN [Concomitant]
     Active Substance: ONDANSETRON HYDROCHLORIDE
  31. OXYCODONE HYDROCHLORIDE [Concomitant]
     Active Substance: OXYCODONE HYDROCHLORIDE
  32. OXYCODONE AND ACETAMINOPHEN [Concomitant]
     Active Substance: ACETAMINOPHEN\OXYCODONE HYDROCHLORIDE
  33. PANTOPRAZOLE SODIUM [Concomitant]
     Active Substance: PANTOPRAZOLE SODIUM
  34. POLYETHYLENE GLYCOL 3350 [Concomitant]
     Active Substance: POLYETHYLENE GLYCOL 3350
  35. PREDNISONE [Concomitant]
     Active Substance: PREDNISONE
  36. COMPAZINE [Concomitant]
     Active Substance: PROCHLORPERAZINE MALEATE
  37. PROMETHAZINE HYDROCHLORIDE [Concomitant]
     Active Substance: PROMETHAZINE HYDROCHLORIDE
  38. TRANSDERM SCOP [Concomitant]
     Active Substance: SCOPOLAMINE
  39. SENNOSIDES [Concomitant]
     Active Substance: SENNOSIDES
  40. PEG-3350 AND ELECTROLYTES [Concomitant]
     Active Substance: POLYETHYLENE GLYCOL 3350\POTASSIUM CHLORIDE\SODIUM BICARBONATE\SODIUM CHLORIDE\SODIUM SULFATE
  41. SUCRALFATE [Concomitant]
     Active Substance: SUCRALFATE
  42. BACTRIM [Concomitant]
     Active Substance: SULFAMETHOXAZOLE\TRIMETHOPRIM
  43. TETRACYCLINE HYDROCHLORIDE [Concomitant]
     Active Substance: TETRACYCLINE HYDROCHLORIDE
  44. TRAMADOL HCL [Concomitant]
     Active Substance: TRAMADOL HYDROCHLORIDE

REACTIONS (5)
  - Septic shock [Fatal]
  - Disease progression [Fatal]
  - Neurotoxicity [Recovering/Resolving]
  - Cytokine release syndrome [Unknown]
  - Klebsiella test positive [Unknown]

NARRATIVE: CASE EVENT DATE: 20241207
